FAERS Safety Report 14990484 (Version 1)
Quarter: 2018Q2

REPORT INFORMATION
  Report Type: Spontaneous
  Country: US (occurrence: US)
  Receive Date: 20180608
  Receipt Date: 20180608
  Transmission Date: 20180711
  Serious: No
  Sender: FDA-Public Use
  Company Number: US-ROCHE-2091360

PATIENT
  Sex: Female

DRUGS (17)
  1. AZATHIOPRINE. [Concomitant]
     Active Substance: AZATHIOPRINE
     Route: 065
  2. ESOMEPRAZOL [Concomitant]
     Active Substance: ESOMEPRAZOLE
     Route: 065
  3. RANEXA [Concomitant]
     Active Substance: RANOLAZINE
     Route: 065
  4. CARVEDIOL [Concomitant]
     Active Substance: CARVEDILOL
     Route: 065
  5. IBUPROFEN. [Concomitant]
     Active Substance: IBUPROFEN
     Route: 065
  6. AMITRIPTYLINE [Concomitant]
     Active Substance: AMITRIPTYLINE
     Route: 065
  7. DIGOXINE [Concomitant]
     Active Substance: DIGOXIN
     Route: 065
  8. EFFIENT [Concomitant]
     Active Substance: PRASUGREL HYDROCHLORIDE
     Route: 065
  9. METFORMIN [Concomitant]
     Active Substance: METFORMIN HYDROCHLORIDE
     Route: 065
  10. TYLENOL [Concomitant]
     Active Substance: ACETAMINOPHEN
  11. ACTEMRA [Suspect]
     Active Substance: TOCILIZUMAB
     Indication: RHEUMATOID ARTHRITIS
     Dosage: HOLD FOR FEVER, SURGERY OF INFECTION, 162 MG 0.9 ML
     Route: 058
  12. ZOLPIDEM [Concomitant]
     Active Substance: ZOLPIDEM\ZOLPIDEM TARTRATE
     Route: 065
  13. LISINOPRIL. [Concomitant]
     Active Substance: LISINOPRIL
     Route: 065
  14. NITROGLYCERIN. [Concomitant]
     Active Substance: NITROGLYCERIN
     Route: 065
  15. SULPHAMETHOXAZOLE + TRIMETHOPRIM [Concomitant]
     Active Substance: SULFAMETHOXAZOLE\TRIMETHOPRIM
  16. LIDOCAINE. [Concomitant]
     Active Substance: LIDOCAINE
     Route: 065
  17. FUROSEMIDE. [Concomitant]
     Active Substance: FUROSEMIDE
     Route: 065

REACTIONS (2)
  - Fall [Unknown]
  - Blood pressure decreased [Recovered/Resolved]
